FAERS Safety Report 13694563 (Version 4)
Quarter: 2017Q3

REPORT INFORMATION
  Report Type: Spontaneous
  Country: US (occurrence: US)
  Receive Date: 20170627
  Receipt Date: 20170714
  Transmission Date: 20171127
  Serious: No
  Sender: FDA-Public Use
  Company Number: US-GLAXOSMITHKLINE-US2017GSK098482

PATIENT
  Age: 78 Year
  Sex: Male

DRUGS (9)
  1. QUINAPRIL. [Concomitant]
     Active Substance: QUINAPRIL
  2. FINASTERIDE. [Concomitant]
     Active Substance: FINASTERIDE
  3. NIFEDICAL XL [Concomitant]
     Active Substance: NIFEDIPINE
  4. TRAMADOL. [Concomitant]
     Active Substance: TRAMADOL
  5. FUROSEMIDE. [Concomitant]
     Active Substance: FUROSEMIDE
  6. WARFARIN [Concomitant]
     Active Substance: WARFARIN
  7. ADVAIR DISKUS [Suspect]
     Active Substance: FLUTICASONE PROPIONATE\SALMETEROL XINAFOATE
     Indication: ASTHMA
     Dosage: 1 PUFF(S), BID
     Route: 055
     Dates: start: 20170606, end: 20170609
  8. SIMVASTATIN. [Concomitant]
     Active Substance: SIMVASTATIN
  9. ATENOLOL. [Concomitant]
     Active Substance: ATENOLOL

REACTIONS (5)
  - Headache [Recovered/Resolved]
  - Migraine [Recovered/Resolved]
  - Overdose [Unknown]
  - Drug ineffective [Unknown]
  - Photophobia [Recovered/Resolved]

NARRATIVE: CASE EVENT DATE: 20170607
